FAERS Safety Report 10595040 (Version 1)
Quarter: 2014Q4

REPORT INFORMATION
  Report Type: Spontaneous
  Country: US (occurrence: None)
  Receive Date: 20141119
  Receipt Date: 20141119
  Transmission Date: 20150529
  Serious: No
  Sender: FDA-Public Use
  Company Number: None

PATIENT
  Sex: Female

DRUGS (1)
  1. TEMOZOLOMIDE. [Suspect]
     Active Substance: TEMOZOLOMIDE
     Indication: BRAIN NEOPLASM
     Dosage: WD FOR 5 DAYS
     Route: 048
     Dates: start: 20140116, end: 20141117

REACTIONS (5)
  - Creatinine renal clearance decreased [None]
  - Visual acuity reduced [None]
  - Platelet count decreased [None]
  - Seizure [None]
  - Electrolyte imbalance [None]
